FAERS Safety Report 8483776-6 (Version None)
Quarter: 2012Q3

REPORT INFORMATION
  Report Type: 
  Country: None (occurrence: None)
  Receive Date: 20120703
  Receipt Date: 20120626
  Transmission Date: 20120928
  Serious: No
  Sender: FDA-Public Use
  Company Number: US-BIOGENIDEC-2012BI018549

PATIENT
  Sex: Female

DRUGS (3)
  1. TYSABRI [Suspect]
     Indication: MULTIPLE SCLEROSIS
     Route: 042
     Dates: start: 20070130
  2. TYSABRI [Suspect]
     Route: 042
     Dates: end: 20120323
  3. AVONEX [Concomitant]
     Indication: MULTIPLE SCLEROSIS
     Route: 030

REACTIONS (8)
  - ARTHRITIS [None]
  - BACK PAIN [None]
  - ANKLE FRACTURE [None]
  - ASTHENIA [None]
  - CONTUSION [None]
  - BACK INJURY [None]
  - PAIN IN EXTREMITY [None]
  - FALL [None]
